FAERS Safety Report 5796347-7 (Version None)
Quarter: 2008Q2

REPORT INFORMATION
  Report Type: 
  Country: None (occurrence: None)
  Receive Date: 20080618
  Receipt Date: 20070622
  Transmission Date: 20081010
  Serious: Yes (Hospitalization)
  Sender: FDA-Public Use
  Company Number: 200714854US

PATIENT
  Sex: Female

DRUGS (2)
  1. LANTUS [Suspect]
  2. MULTIPLE MEDICATIONS NOS [Concomitant]

REACTIONS (2)
  - DIABETES MELLITUS INADEQUATE CONTROL [None]
  - RASH [None]
